FAERS Safety Report 9617081 (Version 1)
Quarter: 2013Q4

REPORT INFORMATION
  Report Type: Report from Study
  Country: US (occurrence: US)
  Receive Date: 20131011
  Receipt Date: 20131011
  Transmission Date: 20140711
  Serious: Yes (Other)
  Sender: FDA-Public Use
  Company Number: US-BAXTER-2013BAX039076

PATIENT
  Age: 73 Year
  Sex: 0

DRUGS (3)
  1. CYCLOPHOSPHAMIDE FOR INJECTION, USP [Suspect]
     Indication: PLASMA CELL MYELOMA
     Route: 042
     Dates: start: 20130510, end: 20130516
  2. VELCADE [Suspect]
     Indication: PLASMA CELL MYELOMA
     Route: 058
     Dates: start: 20130510, end: 20130516
  3. DECADRON [Suspect]
     Indication: PLASMA CELL MYELOMA
     Route: 042
     Dates: start: 20130510, end: 20130516

REACTIONS (1)
  - Pyrexia [Unknown]
